FAERS Safety Report 8591946-1 (Version None)
Quarter: 2012Q3

REPORT INFORMATION
  Report Type: 
  Country: None (occurrence: None)
  Receive Date: 20120814
  Receipt Date: 20120810
  Transmission Date: 20120928
  Serious: Yes (Other)
  Sender: FDA-Public Use
  Company Number: US-PFIZER INC-2012195955

PATIENT
  Age: 61 Year
  Sex: Female
  Weight: 72.6 kg

DRUGS (1)
  1. NEURONTIN [Suspect]
     Indication: HEADACHE
     Dosage: 100 MG, 1X/DAY
     Route: 048
     Dates: start: 19900101

REACTIONS (1)
  - NEOPLASM MALIGNANT [None]
